FAERS Safety Report 7328940-4 (Version None)
Quarter: 2011Q1

REPORT INFORMATION
  Report Type: 
  Country: None (occurrence: None)
  Receive Date: 20110303
  Receipt Date: 20110302
  Transmission Date: 20110831
  Serious: Yes (Hospitalization)
  Sender: FDA-Public Use
  Company Number: IT-SANOFI-AVENTIS-2011SA007173

PATIENT
  Age: 62 Year
  Sex: Female

DRUGS (3)
  1. TAXOTERE [Suspect]
     Route: 041
     Dates: start: 20110105, end: 20110105
  2. TAXOTERE [Suspect]
     Indication: BREAST CANCER
     Route: 041
     Dates: start: 20101215, end: 20101215
  3. XELODA [Suspect]
     Indication: BREAST CANCER
     Route: 048
     Dates: start: 20101216, end: 20110110

REACTIONS (4)
  - HYPOKALAEMIA [None]
  - PALMAR-PLANTAR ERYTHRODYSAESTHESIA SYNDROME [None]
  - STOMATITIS [None]
  - PANCYTOPENIA [None]
